FAERS Safety Report 17018201 (Version 3)
Quarter: 2020Q1

REPORT INFORMATION
  Report Type: Spontaneous
  Country: JP (occurrence: JP)
  Receive Date: 20191111
  Receipt Date: 20200128
  Transmission Date: 20200409
  Serious: Yes (Other)
  Sender: FDA-Public Use
  Company Number: JP-LUNDBECK-DKLU2046441

PATIENT
  Age: 1 Year
  Sex: Female
  Weight: 7 kg

DRUGS (9)
  1. SODIUM VALPROATE [Concomitant]
     Active Substance: VALPROATE SODIUM
     Indication: INFANTILE SPASMS
     Route: 048
  2. SABRIL [Suspect]
     Active Substance: VIGABATRIN
     Indication: INFANTILE SPASMS
     Dosage: IN TWO DIVIDED DOSES
     Route: 048
     Dates: start: 20180223, end: 20180315
  3. SABRIL [Suspect]
     Active Substance: VIGABATRIN
     Dosage: IN TWO DIVIDED DOSES
     Route: 048
     Dates: start: 20180306, end: 20180321
  4. SABRIL [Suspect]
     Active Substance: VIGABATRIN
     Dosage: IN TWO DIVIDED DOSES
     Route: 048
     Dates: start: 20180405, end: 20180418
  5. SABRIL [Suspect]
     Active Substance: VIGABATRIN
     Dosage: IN TWO DIVIDED DOSES
     Route: 048
     Dates: start: 20180419, end: 20180510
  6. SABRIL [Suspect]
     Active Substance: VIGABATRIN
     Dosage: IN TWO DIVIDED DOSES
     Route: 048
     Dates: start: 20180529, end: 20180612
  7. SABRIL [Suspect]
     Active Substance: VIGABATRIN
     Dosage: IN TWO DIVIDED DOSES
     Route: 048
     Dates: start: 20180322, end: 20180404
  8. LAMOTRIGENE [Concomitant]
     Active Substance: LAMOTRIGINE
     Indication: INFANTILE SPASMS
     Route: 065
  9. SABRIL [Suspect]
     Active Substance: VIGABATRIN
     Dosage: IN TWO DIVIDED DOSES
     Route: 048
     Dates: start: 20180511, end: 20180528

REACTIONS (4)
  - Visual impairment [Recovered/Resolved]
  - Intentional overdose [Unknown]
  - Decreased appetite [Recovered/Resolved]
  - Somnolence [Recovered/Resolved]

NARRATIVE: CASE EVENT DATE: 20180401
